FAERS Safety Report 7049077-8 (Version None)
Quarter: 2010Q4

REPORT INFORMATION
  Report Type: 
  Country: None (occurrence: None)
  Receive Date: 20101018
  Receipt Date: 20101007
  Transmission Date: 20110411
  Serious: Yes (Hospitalization)
  Sender: FDA-Public Use
  Company Number: US-JNJFOC-20101002426

PATIENT
  Sex: Male
  Weight: 44 kg

DRUGS (5)
  1. INFLIXIMAB, RECOMBINANT [Suspect]
     Indication: INFLAMMATION
     Route: 042
  2. INFLIXIMAB, RECOMBINANT [Suspect]
     Route: 042
  3. METRONIDAZOLE [Concomitant]
     Route: 065
  4. PREDNISONE [Concomitant]
     Route: 065
  5. CIPRO [Concomitant]
     Route: 065

REACTIONS (3)
  - ABDOMINAL PAIN LOWER [None]
  - CELLULITIS [None]
  - VOMITING [None]
